FAERS Safety Report 5224428-5 (Version None)
Quarter: 2007Q1

REPORT INFORMATION
  Report Type: 
  Country: None (occurrence: None)
  Receive Date: 20070126
  Receipt Date: 20070119
  Transmission Date: 20070707
  Serious: Yes (Other)
  Sender: FDA-Public Use
  Company Number: 2007US000172

PATIENT
  Age: 71 Year
  Sex: Female
  Weight: 70.7 kg

DRUGS (4)
  1. VESICARE [Suspect]
     Indication: HYPERTONIC BLADDER
     Dosage: 5 MG. UID/QD, ORAL
     Route: 048
     Dates: start: 20061127, end: 20061209
  2. PRAVACHOL [Concomitant]
  3. TOPROL-XL [Concomitant]
  4. COUMADIN [Concomitant]

REACTIONS (1)
  - LEUKOCYTOCLASTIC VASCULITIS [None]
